FAERS Safety Report 6592758-0 (Version None)
Quarter: 2010Q1

REPORT INFORMATION
  Report Type: 
  Country: None (occurrence: None)
  Receive Date: 20100222
  Receipt Date: 20100210
  Transmission Date: 20100710
  Serious: Yes (Hospitalization)
  Sender: FDA-Public Use
  Company Number: BE-RANBAXY-2010RR-30766

PATIENT
  Age: 60 Year
  Sex: Female
  Weight: 90 kg

DRUGS (5)
  1. PARACETAMOL [Suspect]
     Dosage: 1 G, QID
  2. VALPROIC ACID [Concomitant]
     Indication: CONVULSION
  3. CARBAMAZEPINE [Concomitant]
     Indication: CONVULSION
  4. DICLOFENAC [Concomitant]
     Indication: ANALGESIC THERAPY
  5. MORPHINE [Concomitant]
     Indication: ANALGESIC THERAPY

REACTIONS (3)
  - COAGULOPATHY [None]
  - ENCEPHALOPATHY [None]
  - HEPATITIS [None]
